FAERS Safety Report 15658003 (Version 1)
Quarter: 2018Q4

REPORT INFORMATION
  Report Type: Report from Study
  Country: FR (occurrence: FR)
  Receive Date: 20181126
  Receipt Date: 20181126
  Transmission Date: 20190205
  Serious: Yes (Life-Threatening, Hospitalization, Other)
  Sender: FDA-Public Use
  Company Number: FR-BRISTOL-MYERS SQUIBB COMPANY-BMS-2018-094935

PATIENT
  Age: 43 Year
  Sex: Male
  Weight: 69 kg

DRUGS (8)
  1. UVEDOSE [Concomitant]
     Active Substance: CHOLECALCIFEROL
     Indication: PROPHYLAXIS
     Dosage: 100000 IU, QMO
     Route: 048
     Dates: start: 20180628
  2. LEVOTHYROX [Concomitant]
     Active Substance: LEVOTHYROXINE
     Indication: HYPOTHYROIDISM
     Dosage: 50 ?G, QD
     Route: 048
     Dates: start: 20180725
  3. NIVOLUMAB [Suspect]
     Active Substance: NIVOLUMAB
     Indication: SMALL CELL LUNG CANCER
     Dosage: 1 MG, Q3WK
     Route: 042
     Dates: start: 20180308, end: 20180828
  4. BETAMETHASONE. [Concomitant]
     Active Substance: BETAMETHASONE
     Indication: PREMEDICATION
     Dosage: 8 MG, QD
     Route: 048
     Dates: start: 20180207, end: 20180330
  5. ROVALPITUZUMAB TESIRINE [Suspect]
     Active Substance: ROVALPITUZUMAB TESIRINE
     Indication: SMALL CELL LUNG CANCER
     Dosage: 0.3 MG/KG, Q6WK
     Route: 042
     Dates: start: 20180207, end: 20180329
  6. IPILIMUMAB [Suspect]
     Active Substance: IPILIMUMAB
     Indication: SMALL CELL LUNG CANCER
     Dosage: 1 MG/KG, Q3WK
     Route: 042
     Dates: start: 20180308, end: 20180509
  7. CARBOSYLANE                        /01711401/ [Concomitant]
     Indication: COLITIS
     Dosage: 140 MG, QD
     Route: 048
     Dates: start: 20180724
  8. STERIMAR                           /01339701/ [Concomitant]
     Active Substance: SEA WATER
     Indication: VIRAL INFECTION
     Dosage: 1 DF, UNK
     Route: 045
     Dates: start: 20180228

REACTIONS (1)
  - Pericardial effusion [Recovered/Resolved]

NARRATIVE: CASE EVENT DATE: 20181005
